FAERS Safety Report 4686371-X (Version None)
Quarter: 2005Q2

REPORT INFORMATION
  Report Type: 
  Country: None (occurrence: None)
  Receive Date: 20050606
  Receipt Date: 20050207
  Transmission Date: 20051028
  Serious: Yes (Disabling)
  Sender: FDA-Public Use
  Company Number: 2005017502

PATIENT
  Age: 41 Year
  Sex: Female

DRUGS (1)
  1. XALATAN [Suspect]
     Indication: GLAUCOMA
     Dosage: 1 DROP (1 IN 1 D), INTRAOCULAR
     Route: 031
     Dates: start: 20040101

REACTIONS (1)
  - MONOPLEGIA [None]
